FAERS Safety Report 14506068 (Version 1)
Quarter: 2018Q1

REPORT INFORMATION
  Report Type: Spontaneous
  Country: US (occurrence: US)
  Receive Date: 20180207
  Receipt Date: 20180207
  Transmission Date: 20180509
  Serious: Yes (Other)
  Sender: FDA-Public Use
  Company Number: None

PATIENT

DRUGS (1)
  1. VALSARTAN. [Suspect]
     Active Substance: VALSARTAN

REACTIONS (7)
  - Chest pain [None]
  - Ventricular tachycardia [None]
  - Hyperkalaemia [None]
  - Therapy cessation [None]
  - Fatigue [None]
  - Oxygen saturation decreased [None]
  - Acute kidney injury [None]
